FAERS Safety Report 10047072 (Version 1)
Quarter: 2014Q1

REPORT INFORMATION
  Report Type: Spontaneous
  Country: US (occurrence: US)
  Receive Date: 20140331
  Receipt Date: 20140331
  Transmission Date: 20141002
  Serious: No
  Sender: FDA-Public Use
  Company Number: US-MYLANLABS-2013S1005702

PATIENT
  Age: 64 Year
  Sex: Female
  Weight: 86.18 kg

DRUGS (15)
  1. FENTANYL TRANSDERMAL SYSTEM [Suspect]
     Indication: BACK PAIN
     Dosage: Q72H
     Route: 062
     Dates: end: 20130311
  2. HYDROCODONE [Concomitant]
     Indication: PAIN
  3. LISINOPRIL [Concomitant]
     Indication: BLOOD PRESSURE INCREASED
  4. ASA [Concomitant]
  5. GABAPENTIN [Concomitant]
     Indication: NEUROPATHY PERIPHERAL
  6. FLUOXETINE [Concomitant]
     Indication: NERVOUSNESS
  7. OMEPRAZOLE [Concomitant]
     Indication: GASTROOESOPHAGEAL REFLUX DISEASE
  8. PREMARIN [Concomitant]
     Indication: MENOPAUSE
  9. HCTZ [Concomitant]
  10. LORAZEPAM [Concomitant]
     Indication: NERVOUSNESS
  11. JANUVIA [Concomitant]
     Indication: DIABETES MELLITUS
  12. METHOCARBAMOL [Concomitant]
     Indication: MUSCLE SPASMS
  13. AMLODIPINE BESYLATE [Concomitant]
     Indication: BLOOD PRESSURE
  14. HUMALOG [Concomitant]
     Indication: DIABETES MELLITUS
     Route: 058
  15. LANTUS [Concomitant]
     Indication: DIABETES MELLITUS
     Route: 058

REACTIONS (3)
  - Drug effect decreased [Not Recovered/Not Resolved]
  - Pain [Not Recovered/Not Resolved]
  - Drug dose omission [Not Recovered/Not Resolved]
